FAERS Safety Report 16276085 (Version 1)
Quarter: 2019Q2

REPORT INFORMATION
  Report Type: Spontaneous
  Country: US (occurrence: US)
  Receive Date: 20190506
  Receipt Date: 20190506
  Transmission Date: 20190711
  Serious: No
  Sender: FDA-Public Use
  Company Number: US-SA-2019SA122122

PATIENT
  Sex: Male

DRUGS (1)
  1. PRALUENT [Suspect]
     Active Substance: ALIROCUMAB
     Indication: LOW DENSITY LIPOPROTEIN INCREASED
     Dosage: 75 MG, QOW
     Dates: start: 20190315

REACTIONS (5)
  - Asthenia [Unknown]
  - Condition aggravated [Unknown]
  - Tinnitus [Unknown]
  - Headache [Unknown]
  - Gait disturbance [Unknown]
